FAERS Safety Report 15557052 (Version 1)
Quarter: 2018Q4

REPORT INFORMATION
  Report Type: Report from Study
  Country: US (occurrence: US)
  Receive Date: 20181026
  Receipt Date: 20181026
  Transmission Date: 20190205
  Serious: Yes (Death, Life-Threatening, Other)
  Sender: FDA-Public Use
  Company Number: PHHY2018US138147

PATIENT
  Age: 64 Year
  Sex: Male
  Weight: 105.1 kg

DRUGS (2)
  1. GSK2118436 [Suspect]
     Active Substance: DABRAFENIB
     Indication: THYROID CANCER
     Dosage: 150 MG, BID
     Route: 048
     Dates: start: 20180928, end: 20181021
  2. TRAMETINIB [Suspect]
     Active Substance: TRAMETINIB
     Indication: THYROID CANCER
     Dosage: 2 MG, QD
     Route: 048
     Dates: start: 20180928

REACTIONS (7)
  - Malignant neoplasm progression [Unknown]
  - Metastases to pleura [Unknown]
  - Haemothorax [Fatal]
  - Thyroid cancer [Unknown]
  - Metastases to heart [Unknown]
  - Thoracic haemorrhage [Unknown]
  - Pleural effusion [Unknown]

NARRATIVE: CASE EVENT DATE: 20181021
